FAERS Safety Report 6503983-9 (Version None)
Quarter: 2009Q4

REPORT INFORMATION
  Report Type: 
  Country: None (occurrence: None)
  Receive Date: 20091215
  Receipt Date: 20091204
  Transmission Date: 20100525
  Serious: Yes (Hospitalization)
  Sender: FDA-Public Use
  Company Number: TCI2009A04961

PATIENT
  Age: 80 Year
  Sex: Male

DRUGS (3)
  1. LANSOPRAZOLE [Suspect]
     Indication: REFLUX OESOPHAGITIS
     Dosage: 15 MG (15 MG, 1 IN 1 D) PER ORAL
     Route: 048
     Dates: start: 20090703, end: 20091106
  2. ASPIRIN [Concomitant]
  3. PLAVIX [Concomitant]

REACTIONS (5)
  - DIARRHOEA [None]
  - GASTROINTESTINAL EROSION [None]
  - GASTROINTESTINAL INFLAMMATION [None]
  - ILEUS PARALYTIC [None]
  - PNEUMONIA [None]
